FAERS Safety Report 19591722 (Version 2)
Quarter: 2021Q3

REPORT INFORMATION
  Report Type: Spontaneous
  Country: US (occurrence: US)
  Receive Date: 20210721
  Receipt Date: 20210930
  Transmission Date: 20211014
  Serious: Yes (Hospitalization)
  Sender: FDA-Public Use
  Company Number: US-BIOMARINAP-US-2021-137329

PATIENT
  Age: 23 Year
  Sex: Female
  Weight: 45 kg

DRUGS (1)
  1. NAGLAZYME [Suspect]
     Active Substance: GALSULFASE
     Indication: MUCOPOLYSACCHARIDOSIS VI
     Dosage: 50 MILLIGRAM, QW
     Route: 042
     Dates: start: 200910

REACTIONS (2)
  - Mental disorder [Unknown]
  - Bipolar disorder [Recovering/Resolving]

NARRATIVE: CASE EVENT DATE: 2021
